FAERS Safety Report 11592310 (Version 1)
Quarter: 2015Q4

REPORT INFORMATION
  Report Type: Other
  Country: CN (occurrence: CN)
  Receive Date: 20151005
  Receipt Date: 20151005
  Transmission Date: 20160304
  Serious: Yes (Hospitalization)
  Sender: FDA-Public Use
  Company Number: CN-NSR_02017_2015

PATIENT
  Age: 73 Year
  Sex: Male

DRUGS (4)
  1. ALLOPURINOL. [Suspect]
     Active Substance: ALLOPURINOL
     Indication: CHRONIC KIDNEY DISEASE
     Dosage: DF
  2. BENZBROMARONE [Concomitant]
     Active Substance: BENZBROMARONE
     Indication: CHRONIC KIDNEY DISEASE
     Dosage: DF
  3. CALCITRIOL. [Concomitant]
     Active Substance: CALCITRIOL
     Dosage: DF
  4. VILDAGLIPTIN [Concomitant]
     Active Substance: VILDAGLIPTIN
     Dosage: DF

REACTIONS (1)
  - Drug eruption [Recovered/Resolved]
